FAERS Safety Report 5763410-6 (Version None)
Quarter: 2008Q2

REPORT INFORMATION
  Report Type: 
  Country: None (occurrence: None)
  Receive Date: 20080604
  Receipt Date: 20080604
  Transmission Date: 20081010
  Serious: Yes (Other)
  Sender: FDA-Public Use
  Company Number: None

PATIENT
  Sex: Female
  Weight: 76.2043 kg

DRUGS (4)
  1. BUPROPION SR 150MG [Suspect]
     Indication: SMOKING CESSATION THERAPY
     Dosage: 150MG DAILY ORAL 150MG BID ORAL
     Route: 048
     Dates: start: 20080505, end: 20080509
  2. BUPROPION SR 150MG [Suspect]
     Indication: SMOKING CESSATION THERAPY
     Dosage: 150MG DAILY ORAL 150MG BID ORAL
     Route: 048
     Dates: start: 20080501, end: 20080510
  3. MULTI-VITAMIN [Concomitant]
  4. PRILOSEC [Concomitant]

REACTIONS (2)
  - URTICARIA [None]
  - VERTIGO [None]
